FAERS Safety Report 16000651 (Version 1)
Quarter: 2019Q1

REPORT INFORMATION
  Report Type: Spontaneous
  Country: US (occurrence: US)
  Receive Date: 20190225
  Receipt Date: 20190225
  Transmission Date: 20190418
  Serious: No
  Sender: FDA-Public Use
  Company Number: US-VIFOR (INTERNATIONAL) INC.-VIT-2016-02246

PATIENT
  Age: 74 Year
  Sex: Male

DRUGS (18)
  1. MAGNESIUM CITRATE. [Concomitant]
     Active Substance: MAGNESIUM CITRATE
  2. MECOBALAMIN [Concomitant]
     Active Substance: METHYLCOBALAMIN
  3. CLONIDINE HCL [Concomitant]
     Active Substance: CLONIDINE HYDROCHLORIDE
  4. VITAMIN D3 [Concomitant]
     Active Substance: CHOLECALCIFEROL
  5. FUROSEMIDE. [Concomitant]
     Active Substance: FUROSEMIDE
  6. GLIPIZIDE. [Concomitant]
     Active Substance: GLIPIZIDE
  7. LOSARTAN POTASSIUM. [Concomitant]
     Active Substance: LOSARTAN POTASSIUM
  8. VELTASSA [Suspect]
     Active Substance: PATIROMER
     Indication: HYPERKALAEMIA
     Route: 048
     Dates: start: 20160326
  9. B12-ACTIVE [Concomitant]
  10. CALCITRIOL. [Concomitant]
     Active Substance: CALCITRIOL
  11. FINASTERIDE. [Concomitant]
     Active Substance: FINASTERIDE
  12. IRON [Concomitant]
     Active Substance: IRON
  13. MINOXIDIL. [Concomitant]
     Active Substance: MINOXIDIL
  14. SIMVASTATIN. [Concomitant]
     Active Substance: SIMVASTATIN
  15. ALLOPURINOL. [Concomitant]
     Active Substance: ALLOPURINOL
  16. AMLODIPINE BESYLATE. [Concomitant]
     Active Substance: AMLODIPINE BESYLATE
  17. SODIUM BICARBONATE. [Concomitant]
     Active Substance: SODIUM BICARBONATE
  18. MULTIVITAMIN MEN [Concomitant]

REACTIONS (2)
  - Bowel movement irregularity [Unknown]
  - Product dose omission [Unknown]

NARRATIVE: CASE EVENT DATE: 20160327
